FAERS Safety Report 16485901 (Version 1)
Quarter: 2019Q2

REPORT INFORMATION
  Report Type: Spontaneous
  Country: DE (occurrence: DE)
  Receive Date: 20190627
  Receipt Date: 20190627
  Transmission Date: 20190711
  Serious: Yes (Hospitalization)
  Sender: FDA-Public Use
  Company Number: DE-EMD SERONO-9040223

PATIENT
  Age: 43 Year
  Sex: Male
  Weight: 110 kg

DRUGS (3)
  1. L-THYROXIN [Concomitant]
     Active Substance: LEVOTHYROXINE SODIUM
     Indication: HYPOTHYROIDISM
     Route: 048
  2. MAVENCLAD [Suspect]
     Active Substance: CLADRIBINE
     Dosage: SECOND WEEK THERAPY WITH 10 TABLETS
     Dates: start: 20180715, end: 20180719
  3. MAVENCLAD [Suspect]
     Active Substance: CLADRIBINE
     Indication: RELAPSING-REMITTING MULTIPLE SCLEROSIS
     Dosage: FIRST WEEK THERAPY WITH 10 TABLETS
     Dates: start: 20180618, end: 20180622

REACTIONS (5)
  - Lymphopenia [Recovered/Resolved]
  - Vibratory sense increased [Unknown]
  - Vertigo [Recovered/Resolved]
  - Atypical pneumonia [Recovering/Resolving]
  - Rash [Recovered/Resolved]

NARRATIVE: CASE EVENT DATE: 20180729
